FAERS Safety Report 6785211-2 (Version None)
Quarter: 2010Q2

REPORT INFORMATION
  Report Type: 
  Country: None (occurrence: None)
  Receive Date: 20100622
  Receipt Date: 20100622
  Transmission Date: 20101027
  Serious: Yes (Hospitalization)
  Sender: FDA-Public Use
  Company Number: None

PATIENT
  Age: 55 Year
  Sex: Male
  Weight: 81.81 kg

DRUGS (15)
  1. VALPROIC ACID [Suspect]
     Indication: BIPOLAR DISORDER
     Dosage: 1500 QHS PO (CHRONIC W/RECENT INCREASE)
     Route: 048
  2. PERCOCET [Concomitant]
  3. METHADONE [Concomitant]
  4. LANTUS [Concomitant]
  5. NOVOLOG [Concomitant]
  6. NICODERM [Concomitant]
  7. TRAZODONE HYDROCHLORIDE [Concomitant]
  8. SENOKOT [Concomitant]
  9. MIRALEX [Concomitant]
  10. CYMBALTA [Concomitant]
  11. CARDIZEM CD [Concomitant]
  12. CLONIDINE [Concomitant]
  13. KLONOPIN [Concomitant]
  14. ASPIRIN [Concomitant]
  15. HYDROCORTISONE [Concomitant]

REACTIONS (4)
  - DRUG LEVEL INCREASED [None]
  - MENTAL STATUS CHANGES [None]
  - RESTLESSNESS [None]
  - URINARY TRACT INFECTION [None]
